FAERS Safety Report 6275060-6 (Version None)
Quarter: 2009Q3

REPORT INFORMATION
  Report Type: 
  Country: None (occurrence: None)
  Receive Date: 20090721
  Receipt Date: 20090714
  Transmission Date: 20100115
  Serious: Yes (Other)
  Sender: FDA-Public Use
  Company Number: RU-ROCHE-643666

PATIENT
  Age: 46 Year
  Sex: Female

DRUGS (1)
  1. XENICAL [Suspect]
     Indication: LIPID METABOLISM DISORDER
     Route: 048
     Dates: start: 20090401, end: 20090701

REACTIONS (1)
  - FAECES DISCOLOURED [None]
